APPROVED DRUG PRODUCT: MEZOFY
Active Ingredient: ARIPIPRAZOLE
Strength: 5MG
Dosage Form/Route: FILM;ORAL
Application: N211448 | Product #001
Applicant: CMG PHARMACEUTICAL CO LTD
Approved: Apr 15, 2025 | RLD: Yes | RS: No | Type: DISCN

PATENTS:
Patent 9694008 | Expires: Aug 7, 2033